FAERS Safety Report 25094378 (Version 1)
Quarter: 2025Q1

REPORT INFORMATION
  Report Type: Spontaneous
  Country: US (occurrence: None)
  Receive Date: 20250318
  Receipt Date: 20250318
  Transmission Date: 20250408
  Serious: No
  Sender: FDA-CTU
  Company Number: None

PATIENT
  Age: 73 Year
  Sex: Female

DRUGS (1)
  1. REPATHA [Suspect]
     Active Substance: EVOLOCUMAB
     Indication: Hyperlipidaemia
     Dosage: FREQUENCY : EVERY THREE WEEKS;?
     Dates: start: 20231222

REACTIONS (2)
  - Oropharyngeal pain [None]
  - Therapy interrupted [None]

NARRATIVE: CASE EVENT DATE: 20250202
